FAERS Safety Report 6164249-2 (Version None)
Quarter: 2009Q2

REPORT INFORMATION
  Report Type: 
  Country: None (occurrence: None)
  Receive Date: 20090420
  Receipt Date: 20090402
  Transmission Date: 20091009
  Serious: Yes (Other)
  Sender: FDA-Public Use
  Company Number: 8044728

PATIENT
  Sex: Female

DRUGS (1)
  1. KEPPRA [Suspect]
     Dosage: IV
     Route: 042

REACTIONS (3)
  - CARDIOPULMONARY FAILURE [None]
  - DRUG HYPERSENSITIVITY [None]
  - PULMONARY OEDEMA [None]
